FAERS Safety Report 10411890 (Version 3)
Quarter: 2014Q3

REPORT INFORMATION
  Report Type: Spontaneous
  Country: SK (occurrence: SK)
  Receive Date: 20140827
  Receipt Date: 20140902
  Transmission Date: 20150326
  Serious: Yes (Life-Threatening, Hospitalization)
  Sender: FDA-Public Use
  Company Number: SK-SA-2014SA109980

PATIENT
  Age: 60 Year
  Sex: Male

DRUGS (2)
  1. SOLOSTAR [Concomitant]
     Active Substance: DEVICE
     Indication: SUICIDE ATTEMPT
     Dates: start: 20140811, end: 20140811
  2. LANTUS SOLOSTAR [Suspect]
     Active Substance: INSULIN GLARGINE
     Indication: SUICIDE ATTEMPT
     Route: 058
     Dates: start: 20140811, end: 20140811

REACTIONS (6)
  - Hypoglycaemia [Recovered/Resolved]
  - Cardiac arrest [Recovered/Resolved]
  - Overdose [Unknown]
  - Loss of consciousness [Recovered/Resolved]
  - Epilepsy [Recovered/Resolved]
  - Suicide attempt [Unknown]

NARRATIVE: CASE EVENT DATE: 20140811
